FAERS Safety Report 8411629-8 (Version None)
Quarter: 2012Q2

REPORT INFORMATION
  Report Type: 
  Country: None (occurrence: None)
  Receive Date: 20120531
  Receipt Date: 20120531
  Transmission Date: 20120825
  Serious: Yes (Other)
  Sender: FDA-Public Use
  Company Number: None

PATIENT
  Age: 68 Year
  Sex: Female
  Weight: 65.7716 kg

DRUGS (1)
  1. ACTONEL [Suspect]
     Indication: OSTEOPOROSIS
     Dosage: 150 MG. TAB 1 A MONTH
     Dates: start: 20120501

REACTIONS (7)
  - BACK PAIN [None]
  - ARTHRALGIA [None]
  - FEELING ABNORMAL [None]
  - PAIN IN EXTREMITY [None]
  - DYSPNOEA [None]
  - MUSCULOSKELETAL CHEST PAIN [None]
  - PYREXIA [None]
